FAERS Safety Report 13791395 (Version 1)
Quarter: 2017Q3

REPORT INFORMATION
  Report Type: Spontaneous
  Country: US (occurrence: US)
  Receive Date: 20170725
  Receipt Date: 20170725
  Transmission Date: 20171127
  Serious: No
  Sender: FDA-Public Use
  Company Number: US-BAYER-2017-138909

PATIENT
  Age: 64 Year
  Sex: Female
  Weight: 56.24 kg

DRUGS (3)
  1. DOCUSATE SODIUM. [Concomitant]
     Active Substance: DOCUSATE SODIUM
  2. MIRALAX [Suspect]
     Active Substance: POLYETHYLENE GLYCOL 3350
     Indication: GASTROINTESTINAL DISORDER
     Dosage: 1 UNK, UNK
     Dates: start: 201001
  3. MIRALAX [Suspect]
     Active Substance: POLYETHYLENE GLYCOL 3350
     Indication: ABDOMINAL PAIN LOWER
     Dosage: 0.5 DF, UNK

REACTIONS (6)
  - Drug ineffective for unapproved indication [Recovered/Resolved]
  - Product use in unapproved indication [Unknown]
  - Product use issue [Recovered/Resolved]
  - Inappropriate prescribing [Unknown]
  - Expired product administered [Unknown]
  - Product use issue [Unknown]

NARRATIVE: CASE EVENT DATE: 201001
